FAERS Safety Report 7097456-5 (Version None)
Quarter: 2010Q4

REPORT INFORMATION
  Report Type: 
  Country: None (occurrence: None)
  Receive Date: 20101111
  Receipt Date: 20101105
  Transmission Date: 20110411
  Serious: Yes (Other)
  Sender: FDA-Public Use
  Company Number: BR-PFIZER INC-2010128897

PATIENT
  Age: 66 Year
  Sex: Female
  Weight: 55 kg

DRUGS (7)
  1. CHAMPIX [Suspect]
     Indication: TOBACCO USER
     Dosage: UNK
     Route: 048
     Dates: start: 20100923
  2. CHAMPIX [Suspect]
     Indication: NICOTINE DEPENDENCE
     Dosage: 1 MG, 2X/DAY
     Route: 048
     Dates: end: 20101001
  3. TANDRIFLAN [Concomitant]
     Indication: LOWER LIMB FRACTURE
     Dosage: UNK
  4. TANDRIFLAN [Concomitant]
     Indication: INTERVERTEBRAL DISC PROTRUSION
  5. TANDRIFLAN [Concomitant]
     Indication: BACK DISORDER
  6. DORFLEX [Concomitant]
     Indication: LOWER LIMB FRACTURE
     Dosage: UNK
  7. DORFLEX [Concomitant]
     Indication: INTERVERTEBRAL DISC PROTRUSION

REACTIONS (5)
  - ABDOMINAL DISTENSION [None]
  - ABDOMINAL PAIN [None]
  - ABDOMINAL RIGIDITY [None]
  - DECREASED APPETITE [None]
  - DYSPNOEA [None]
